FAERS Safety Report 21522105 (Version 1)
Quarter: 2022Q4

REPORT INFORMATION
  Report Type: Spontaneous
  Country: US (occurrence: None)
  Receive Date: 20221027
  Receipt Date: 20221027
  Transmission Date: 20230113
  Serious: Yes (Hospitalization)
  Sender: FDA-Public Use
  Company Number: None

PATIENT
  Age: 53 Year
  Sex: Female
  Weight: 65 kg

DRUGS (1)
  1. SEMAGLUTIDE [Suspect]
     Active Substance: SEMAGLUTIDE
     Indication: Diabetes mellitus
     Dosage: 0.25 MG QWEEK SQ
     Route: 058

REACTIONS (5)
  - Illness [None]
  - Nausea [None]
  - Vomiting [None]
  - Pain [None]
  - Pancreatitis [None]

NARRATIVE: CASE EVENT DATE: 20220821
